FAERS Safety Report 7864176-6 (Version None)
Quarter: 2011Q4

REPORT INFORMATION
  Report Type: 
  Country: None (occurrence: None)
  Receive Date: 20111028
  Receipt Date: 20111025
  Transmission Date: 20120403
  Serious: Yes (Other)
  Sender: FDA-Public Use
  Company Number: DE-PFIZER INC-2011258846

PATIENT
  Sex: Female

DRUGS (1)
  1. ATORVASTATIN CALCIUM [Suspect]
     Dosage: 10MG, UNK

REACTIONS (5)
  - DYSPNOEA [None]
  - VASCULAR STENOSIS [None]
  - TACHYCARDIA [None]
  - HYPERTENSION [None]
  - GENERAL PHYSICAL HEALTH DETERIORATION [None]
